FAERS Safety Report 19475508 (Version 1)
Quarter: 2021Q2

REPORT INFORMATION
  Report Type: Spontaneous
  Country: US (occurrence: US)
  Receive Date: 20210629
  Receipt Date: 20210629
  Transmission Date: 20210717
  Serious: Yes (Life-Threatening, Hospitalization, Disabling, Other)
  Sender: FDA-Public Use
  Company Number: US-009507513-2106USA006421

PATIENT
  Sex: Male

DRUGS (1)
  1. KEYTRUDA [Suspect]
     Active Substance: PEMBROLIZUMAB
     Indication: NASAL CAVITY CANCER
     Dosage: (INFUSION) 200 MG/EVERY 3 WEEKS
     Route: 042
     Dates: start: 202006, end: 20210622

REACTIONS (7)
  - Adverse event [Not Recovered/Not Resolved]
  - Gait inability [Not Recovered/Not Resolved]
  - Rash [Not Recovered/Not Resolved]
  - Malignant neoplasm progression [Not Recovered/Not Resolved]
  - Gait inability [Recovered/Resolved]
  - Blister [Not Recovered/Not Resolved]
  - Blister [Recovered/Resolved]

NARRATIVE: CASE EVENT DATE: 202006
